FAERS Safety Report 13260308 (Version 1)
Quarter: 2017Q1

REPORT INFORMATION
  Report Type: Spontaneous
  Country: US (occurrence: US)
  Receive Date: 20170222
  Receipt Date: 20170222
  Transmission Date: 20170428
  Serious: Yes (Hospitalization)
  Sender: FDA-Public Use
  Company Number: None

PATIENT
  Age: 85 Year
  Sex: Female
  Weight: 44 kg

DRUGS (10)
  1. ALPRAZOLAM. [Suspect]
     Active Substance: ALPRAZOLAM
  2. VITAMIN D3 [Concomitant]
     Active Substance: CHOLECALCIFEROL
  3. COQ10 [Concomitant]
     Active Substance: UBIDECARENONE
  4. BIOTIN [Concomitant]
     Active Substance: BIOTIN
  5. FLAX OIL [Concomitant]
  6. DILLIAZEM [Concomitant]
  7. MULTIVITAMINS [Concomitant]
     Active Substance: VITAMINS
  8. CLINDAMYCIN. [Suspect]
     Active Substance: CLINDAMYCIN
     Indication: TOOTH EXTRACTION
     Route: 048
  9. TRIAMT/HCTZ [Concomitant]
     Active Substance: HYDROCHLOROTHIAZIDE\TRIAMTERENE
  10. CALCIUM [Concomitant]
     Active Substance: CALCIUM

REACTIONS (2)
  - Malaise [None]
  - Clostridium difficile infection [None]

NARRATIVE: CASE EVENT DATE: 20161212
